FAERS Safety Report 6418910-2 (Version None)
Quarter: 2009Q4

REPORT INFORMATION
  Report Type: 
  Country: None (occurrence: None)
  Receive Date: 20091029
  Receipt Date: 20091022
  Transmission Date: 20100525
  Serious: Yes (Hospitalization)
  Sender: FDA-Public Use
  Company Number: FR-WYE-G04687809

PATIENT
  Age: 92 Year
  Sex: Female

DRUGS (11)
  1. EFFEXOR [Suspect]
     Indication: DEPRESSION
     Route: 048
     Dates: start: 20090711, end: 20090717
  2. PERINDOPRIL [Interacting]
     Route: 048
     Dates: start: 20090716, end: 20090723
  3. PERINDOPRIL [Interacting]
     Dosage: 4 MG TOTAL DAILY
     Route: 048
     Dates: start: 20090724
  4. ACTONEL [Concomitant]
     Route: 048
  5. FORLAX [Concomitant]
     Dosage: UNKNOWN; ON REQUEST
     Route: 048
  6. OSSOPAN [Concomitant]
     Route: 048
  7. ACUILIX [Interacting]
     Dosage: 12.5 MG HYDROCHLOROTHIAZIDE/20 MG QUINAPRIL 1 TIME DAILY
     Route: 048
     Dates: end: 20090716
  8. IMOVANE [Concomitant]
     Route: 048
  9. ESIDRIX [Interacting]
     Dosage: 12.5 MG TOTAL DAILY
     Route: 048
     Dates: start: 20090716, end: 20090820
  10. ESIDRIX [Interacting]
     Dosage: 25 MG TOTAL DAILY
     Route: 048
     Dates: start: 20090821
  11. ONE-ALPHA [Concomitant]
     Route: 048

REACTIONS (5)
  - CONFUSIONAL STATE [None]
  - DEHYDRATION [None]
  - DRUG INTERACTION [None]
  - HAEMOCONCENTRATION [None]
  - HYPONATRAEMIA [None]
